FAERS Safety Report 10311477 (Version 1)
Quarter: 2014Q3

REPORT INFORMATION
  Report Type: Spontaneous
  Country: DE (occurrence: DE)
  Receive Date: 20140717
  Receipt Date: 20140717
  Transmission Date: 20150326
  Serious: Yes (Other)
  Sender: FDA-Public Use
  Company Number: DE-TEVA-494750GER

PATIENT
  Age: 29 Year
  Sex: Female

DRUGS (1)
  1. CARBAMAZEPIN [Suspect]
     Active Substance: CARBAMAZEPINE
     Indication: EPILEPSY
     Dosage: DOSAGE UNKNOWN
     Route: 048
     Dates: start: 20120920, end: 20130610

REACTIONS (4)
  - HELLP syndrome [Unknown]
  - Placental insufficiency [Unknown]
  - Thrombocytopenia [Unknown]
  - Live birth [Unknown]
